FAERS Safety Report 13394829 (Version 1)
Quarter: 2017Q2

REPORT INFORMATION
  Report Type: Spontaneous
  Country: TW (occurrence: TW)
  Receive Date: 20170403
  Receipt Date: 20170403
  Transmission Date: 20170830
  Serious: Yes (Hospitalization)
  Sender: FDA-Public Use
  Company Number: TW-ACCORD-049766

PATIENT
  Age: 68 Year
  Sex: Male

DRUGS (3)
  1. FLUOROURACIL. [Suspect]
     Active Substance: FLUOROURACIL
     Indication: SQUAMOUS CELL CARCINOMA
     Dosage: TWO DOSES
  2. FOLINIC ACID [Suspect]
     Active Substance: LEUCOVORIN
     Indication: SQUAMOUS CELL CARCINOMA
  3. CISPLATIN. [Suspect]
     Active Substance: CISPLATIN
     Indication: SQUAMOUS CELL CARCINOMA
     Dosage: TWO DOSES

REACTIONS (1)
  - Extradural abscess [Recovering/Resolving]
